FAERS Safety Report 9174151 (Version 1)
Quarter: 2013Q1

REPORT INFORMATION
  Report Type: Spontaneous
  Country: US (occurrence: None)
  Receive Date: 20130318
  Receipt Date: 20130318
  Transmission Date: 20140127
  Serious: Yes (Other)
  Sender: FDA-Public Use
  Company Number: 2013-00069

PATIENT
  Age: 79 Year
  Sex: Female

DRUGS (2)
  1. ZICAM COLD REMEDY [Suspect]
     Indication: NASOPHARYNGITIS
     Dosage: 1 LIQUI-LOZ EVERY 3 HOUR
     Dates: start: 20130221, end: 20130224
  2. WARFARIN, NEURONTIN, LASIX, COREG, ZOCOR, POTASSIUM CHLORIDE, OMEPRAZOLE, CLARITIN, CALCIUM [Concomitant]

REACTIONS (1)
  - International normalised ratio increased [None]
